FAERS Safety Report 5619740-1 (Version None)
Quarter: 2008Q1

REPORT INFORMATION
  Report Type: 
  Country: None (occurrence: None)
  Receive Date: 20080208
  Receipt Date: 20071129
  Transmission Date: 20080703
  Serious: No
  Sender: FDA-Public Use
  Company Number: A0696560A

PATIENT
  Age: 7 Year
  Sex: Female

DRUGS (2)
  1. ALTABAX [Suspect]
     Indication: RASH
     Dosage: 1APP TWICE PER DAY
     Route: 061
     Dates: start: 20071120, end: 20071121
  2. AMOXIL [Concomitant]

REACTIONS (1)
  - PAIN [None]
